FAERS Safety Report 7592326-8 (Version None)
Quarter: 2011Q3

REPORT INFORMATION
  Report Type: 
  Country: None (occurrence: None)
  Receive Date: 20110706
  Receipt Date: 20110622
  Transmission Date: 20111222
  Serious: Yes (Other)
  Sender: FDA-Public Use
  Company Number: PT-JNJFOC-20110502896

PATIENT
  Age: 16 Year
  Sex: Female

DRUGS (3)
  1. CLEMASTINE FUMARATE [Concomitant]
     Route: 065
  2. REMICADE [Suspect]
     Indication: CROHN'S DISEASE
     Route: 042
  3. HYDROCORTISONE [Concomitant]
     Route: 065

REACTIONS (3)
  - CYANOSIS [None]
  - INFUSION RELATED REACTION [None]
  - DYSPNOEA [None]
